FAERS Safety Report 6318944 (Version 8)
Quarter: 2014Q2

REPORT INFORMATION
  Report Type: Spontaneous
  Country: JP (occurrence: JP)
  Receive Date: 20070523
  Receipt Date: 20140509
  Transmission Date: 20141212
  Serious: Yes (Other)
  Sender: FDA-Public Use
  Company Number: JP-PFIZER INC-2007040189

PATIENT
  Age: 57 Year
  Sex: Female
  Weight: 48 kg

DRUGS (17)
  1. SULPERAZON [Suspect]
     Indication: INFECTION
     Route: 042
     Dates: start: 200507, end: 200705
  2. NORVASC [Suspect]
     Dosage: 10 MG, DAILY
     Route: 048
  3. LIPITOR [Suspect]
     Dosage: 10 MG, DAILY
     Route: 048
     Dates: end: 2007
  4. SODIUM BICARBONATE [Suspect]
     Dosage: 1 G, DAILY
     Route: 048
  5. ZYLORIC ^FAES^ [Suspect]
     Dosage: 50 MG, DAILY
     Route: 048
  6. RENIVACE [Suspect]
     Dosage: 2.5 MG, DAILY
     Route: 048
  7. THYRADIN S [Concomitant]
     Dosage: 25 MG, DAILY
     Route: 048
  8. LUPRAC [Concomitant]
     Dosage: 8 MG, DAILY
     Route: 048
  9. CINAL [Concomitant]
     Dosage: 1 G, DAILY
     Route: 048
  10. URSO [Concomitant]
     Dosage: 300 MG, DAILY
     Route: 048
  11. BIOFERMIN R [Concomitant]
     Dosage: 3 G, DAILY
     Route: 048
  12. GASTER [Concomitant]
     Route: 048
  13. PREDONINE [Concomitant]
     Dosage: 2.5 MG, DAILY
     Route: 048
  14. CELLCEPT [Concomitant]
     Dosage: 500 MG, DAILY
     Route: 048
  15. LASIX [Concomitant]
     Dosage: 80 MG, DAILY
     Route: 048
  16. NEORAL [Concomitant]
     Dosage: 100 MG, DAILY
     Route: 048
  17. PARIET [Concomitant]

REACTIONS (5)
  - Loss of consciousness [Unknown]
  - Blood pressure decreased [Recovered/Resolved]
  - Rhabdomyolysis [Recovered/Resolved]
  - Sneezing [Not Recovered/Not Resolved]
  - Vomiting [Recovered/Resolved]
